FAERS Safety Report 14320973 (Version 1)
Quarter: 2017Q4

REPORT INFORMATION
  Report Type: Spontaneous
  Country: US (occurrence: US)
  Receive Date: 20171223
  Receipt Date: 20171223
  Transmission Date: 20180321
  Serious: Yes (Hospitalization)
  Sender: FDA-Public Use
  Company Number: US-AXELLIA-001228

PATIENT
  Age: 68 Year
  Sex: Male

DRUGS (3)
  1. RIFAMPICIN [Concomitant]
     Active Substance: RIFAMPIN
  2. DAPTOMYCIN. [Suspect]
     Active Substance: DAPTOMYCIN
     Indication: PRODUCT USED FOR UNKNOWN INDICATION
  3. VANCOMYCIN [Suspect]
     Active Substance: VANCOMYCIN
     Indication: SEPTIC ARTHRITIS STAPHYLOCOCCAL

REACTIONS (2)
  - Nephropathy toxic [Unknown]
  - Eosinophilic pneumonia [Unknown]
